FAERS Safety Report 12120019 (Version 1)
Quarter: 2016Q1

REPORT INFORMATION
  Report Type: Spontaneous
  Country: FR (occurrence: FR)
  Receive Date: 20160226
  Receipt Date: 20160226
  Transmission Date: 20160526
  Serious: Yes (Death, Hospitalization, Other)
  Sender: FDA-Public Use
  Company Number: FR-BAXTER-2016BAX008184

PATIENT
  Age: 2 Month
  Sex: Female

DRUGS (11)
  1. VINCRISTINE SULFATE. [Suspect]
     Active Substance: VINCRISTINE SULFATE
     Dosage: DAY 1 OF SECOND COURSE OF CADO PROTOCOL, 0.03 MG/KG
     Route: 042
     Dates: start: 20150922, end: 20150922
  2. DOXORUBICIN [Suspect]
     Active Substance: DOXORUBICIN
     Indication: PRODUCT USED FOR UNKNOWN INDICATION
     Dosage: DAY 4 AND DAY 5 OF FIRST COURSE OF CADO PROTOCOL
     Route: 065
  3. RIVOTRIL [Suspect]
     Active Substance: CLONAZEPAM
     Indication: PRODUCT USED FOR UNKNOWN INDICATION
     Route: 065
     Dates: start: 20150927
  4. CARBOPLATIN. [Suspect]
     Active Substance: CARBOPLATIN
     Dosage: SECOND COURSE
     Route: 065
     Dates: start: 20150831
  5. DOXORUBICIN [Suspect]
     Active Substance: DOXORUBICIN
     Dosage: DAY 4 AND DAY 5 OF SECOND COURSE OF CADO PROTOCOL
     Route: 065
  6. ENDOXAN 1000 MG, POUDRE POUR SOLUTION INJECTABLE [Suspect]
     Active Substance: CYCLOPHOSPHAMIDE
     Indication: PRODUCT USED FOR UNKNOWN INDICATION
     Dosage: D1 TO D5, FIRST COURSE OF CADO PROTOCOL
     Route: 042
     Dates: start: 20150918
  7. VP16 [Suspect]
     Active Substance: ETOPOSIDE
     Indication: RHABDOID TUMOUR
     Dosage: FIRST COURSE
     Route: 065
     Dates: start: 20150808
  8. ENDOXAN 1000 MG, POUDRE POUR SOLUTION INJECTABLE [Suspect]
     Active Substance: CYCLOPHOSPHAMIDE
     Dosage: D1 TO D5, SECOND COURSE OF CADO PROTOCOL
     Route: 042
     Dates: start: 20150922
  9. VINCRISTINE SULFATE. [Suspect]
     Active Substance: VINCRISTINE SULFATE
     Indication: PRODUCT USED FOR UNKNOWN INDICATION
     Dosage: DAY 1 OF FIRST COURSE OF CADO PROTOCOL, 0.03 MG/KG
     Route: 042
     Dates: start: 20150918
  10. CARBOPLATIN. [Suspect]
     Active Substance: CARBOPLATIN
     Indication: RHABDOID TUMOUR
     Dosage: FIRST COURSE
     Route: 065
     Dates: start: 20150808
  11. VP16 [Suspect]
     Active Substance: ETOPOSIDE
     Dosage: SECOND COURSE
     Route: 065
     Dates: start: 20150831

REACTIONS (6)
  - Neurological decompensation [Fatal]
  - Seizure [Fatal]
  - Adverse drug reaction [Unknown]
  - Strabismus [Unknown]
  - Metastases to central nervous system [Unknown]
  - Hyponatraemia [Recovering/Resolving]

NARRATIVE: CASE EVENT DATE: 20150926
